FAERS Safety Report 9207784 (Version 1)
Quarter: 2013Q2

REPORT INFORMATION
  Report Type: Report from Study
  Country: KR (occurrence: KR)
  Receive Date: 20130403
  Receipt Date: 20130403
  Transmission Date: 20140414
  Serious: Yes (Other)
  Sender: FDA-Public Use
  Company Number: KR-NAPPMUNDI-GBR-2013-0013567

PATIENT
  Sex: Male

DRUGS (7)
  1. OXYCODONE [Suspect]
     Indication: CANCER PAIN
     Dosage: UNK
     Route: 048
     Dates: start: 20101201
  2. TRAMADOL HCL [Concomitant]
     Dosage: UNK
     Dates: start: 20101026
  3. FENTANYL [Concomitant]
     Dosage: UNK
     Dates: start: 20110211
  4. ACETAMINOPHEN [Concomitant]
     Dosage: UNK
     Dates: start: 20100528
  5. MAGNESIUM OXIDE [Concomitant]
     Dosage: UNK
     Dates: start: 20101103
  6. LACTITOL [Concomitant]
     Dosage: UNK
     Dates: start: 20110215
  7. FLEET ENEMA                        /00129701/ [Concomitant]
     Dosage: UNK
     Dates: start: 20110216

REACTIONS (2)
  - Delirium [Unknown]
  - Urinary retention [Unknown]
